FAERS Safety Report 4760726-7 (Version None)
Quarter: 2005Q3

REPORT INFORMATION
  Report Type: 
  Country: None (occurrence: None)
  Receive Date: 20050902
  Receipt Date: 20050711
  Transmission Date: 20060218
  Serious: Yes (Hospitalization)
  Sender: FDA-Public Use
  Company Number: 200512300FR

PATIENT
  Age: 78 Year
  Sex: Female

DRUGS (9)
  1. LASILIX [Suspect]
     Route: 048
     Dates: end: 20050626
  2. ALDACTAZINE [Suspect]
     Route: 048
     Dates: end: 20050626
  3. LIBRAX [Concomitant]
     Route: 048
  4. VEINAMITOL [Concomitant]
     Route: 048
  5. XANAX [Concomitant]
     Route: 048
  6. CELECTOL [Concomitant]
     Route: 048
  7. METEOXANE [Concomitant]
     Dates: start: 20050622
  8. JECOPEPTOL [Concomitant]
     Dates: start: 20050622
  9. MOVICOL [Concomitant]
     Dates: start: 20050622

REACTIONS (12)
  - ANOREXIA [None]
  - ASTHENIA [None]
  - CONFUSIONAL STATE [None]
  - DEHYDRATION [None]
  - DEPRESSED LEVEL OF CONSCIOUSNESS [None]
  - DISORIENTATION [None]
  - FALL [None]
  - HYPOCHLORAEMIA [None]
  - HYPOKALAEMIA [None]
  - HYPONATRAEMIA [None]
  - INCOHERENT [None]
  - SOMNOLENCE [None]
